FAERS Safety Report 9159440 (Version 1)
Quarter: 2013Q1

REPORT INFORMATION
  Report Type: Spontaneous
  Country: US (occurrence: None)
  Receive Date: 20130220
  Receipt Date: 20130220
  Transmission Date: 20140127
  Serious: Yes (Congenital Anomaly)
  Sender: FDA-Public Use
  Company Number: ZYD-13-AE-014

PATIENT
  Age: 32 Year
  Sex: Female

DRUGS (8)
  1. RIBAVIRIN [Suspect]
     Indication: HEPATITIS C
     Route: 048
     Dates: start: 201206, end: 201210
  2. PEGASYS [Suspect]
     Indication: HEPATITIS C
     Route: 058
     Dates: start: 201206, end: 201210
  3. IRON SUPPLEMENT [Concomitant]
  4. VALIUM [Concomitant]
  5. WELLBUTRIN [Concomitant]
  6. ALBUTEROL [Concomitant]
  7. BENZONATATE [Concomitant]
  8. CEFDINIR (OMNICEF) [Concomitant]

REACTIONS (4)
  - Pregnancy [None]
  - Maternal exposure during pregnancy [None]
  - Lower respiratory tract infection [None]
  - Abortion missed [None]
